FAERS Safety Report 23168111 (Version 1)
Quarter: 2023Q4

REPORT INFORMATION
  Report Type: Spontaneous
  Country: AU (occurrence: AU)
  Receive Date: 20231109
  Receipt Date: 20231109
  Transmission Date: 20240110
  Serious: Yes (Other)
  Sender: FDA-Public Use
  Company Number: AU-BAXTER-2023BAX035325

PATIENT
  Sex: Male

DRUGS (20)
  1. DOXORUBICIN [Suspect]
     Active Substance: DOXORUBICIN
     Indication: Neoplasm
     Dosage: UNK, AS A PART OF RCHOP+BEAM ASCT,  START DATE: 2019
     Route: 065
  2. DOXORUBICIN [Suspect]
     Active Substance: DOXORUBICIN
     Dosage: UNK, AS A PART OF R-CVD+R REGIMEN, START DATE:2010
     Route: 065
  3. CYCLOPHOSPHAMIDE [Suspect]
     Active Substance: CYCLOPHOSPHAMIDE
     Indication: Neoplasm
     Dosage: UNK, AS A PART OF RCVP, START DATE: 2006
     Route: 065
  4. CYCLOPHOSPHAMIDE [Suspect]
     Active Substance: CYCLOPHOSPHAMIDE
     Dosage: UNK, AS A PART OF RCHOP+BEAM ASCT, START DATE: 2019
     Route: 065
  5. CYCLOPHOSPHAMIDE [Suspect]
     Active Substance: CYCLOPHOSPHAMIDE
     Dosage: UNK, AS A PART OF R-CVD+R REGIMEN, START DATE: 2010
     Route: 065
  6. RITUXIMAB [Suspect]
     Active Substance: RITUXIMAB
     Indication: Neoplasm
     Dosage: UNK, AS A PART OF R REGIMEN, START DATE: 2004
     Route: 065
  7. RITUXIMAB [Suspect]
     Active Substance: RITUXIMAB
     Dosage: UNK, AS A PART OF RCVP, START DATE: 2006
     Route: 065
  8. RITUXIMAB [Suspect]
     Active Substance: RITUXIMAB
     Dosage: UNK, AS A PART OF R-CVD+R REGIMEN, START DATE: 2010
     Route: 065
  9. RITUXIMAB [Suspect]
     Active Substance: RITUXIMAB
     Dosage: UNK, AS A PART OF RCHOP+BEAM ASCT, START DATE: 2019
     Route: 065
  10. VINCRISTINE [Suspect]
     Active Substance: VINCRISTINE
     Indication: Neoplasm
     Dosage: UNK, AS A PART OF RCVP, START DATE: 2006
     Route: 065
  11. VINCRISTINE [Suspect]
     Active Substance: VINCRISTINE
     Dosage: UNK, AS A PART OF R-CVD+R, START DATE: 2010
     Route: 065
  12. VINCRISTINE [Suspect]
     Active Substance: VINCRISTINE
     Dosage: UNK, AS A PART OF RCHOP+BEAM ASCT, START DATE: 2019
     Route: 065
  13. PREDNISONE [Suspect]
     Active Substance: PREDNISONE
     Indication: Neoplasm
     Dosage: UNK, AS A PART OF RCVP, START DATE: 2006
     Route: 065
  14. PREDNISONE [Suspect]
     Active Substance: PREDNISONE
     Dosage: UNK, AS A PART OF RCHOP+BEAM ASCT, START DATE: 2019
     Route: 065
  15. CARMUSTINE [Suspect]
     Active Substance: CARMUSTINE
     Indication: Neoplasm
     Dosage: UNK, AS A PART OF RCHOP+BEAM ASCT, START DATE: 2019
     Route: 065
  16. ETOPOSIDE [Suspect]
     Active Substance: ETOPOSIDE
     Indication: Neoplasm
     Dosage: UNK, AS A PART OF RCHOP+BEAM ASCT, START DATE: 2019
     Route: 065
  17. CYTARABINE [Suspect]
     Active Substance: CYTARABINE
     Indication: Neoplasm
     Dosage: UNK, AS A PART OF RCHOP+BEAM ASCT, START DATE: 2019
     Route: 065
  18. MELPHALAN [Suspect]
     Active Substance: MELPHALAN
     Indication: Neoplasm
     Dosage: UNK, AS A PART OF RCHOP+BEAM ASCT, START DATE: 2019
     Route: 065
  19. FLUDARABINE [Suspect]
     Active Substance: FLUDARABINE PHOSPHATE
     Indication: Neoplasm
     Dosage: UNK, START DATE: 2023
     Route: 065
  20. REVLIMID [Suspect]
     Active Substance: LENALIDOMIDE
     Indication: Neoplasm
     Dosage: UNK, AS A PART OF R-CVD+R REGIMEN, START DATE: 2010
     Route: 065

REACTIONS (1)
  - Hodgkin^s disease recurrent [Unknown]
